FAERS Safety Report 6553123-5 (Version None)
Quarter: 2010Q1

REPORT INFORMATION
  Report Type: 
  Country: None (occurrence: None)
  Receive Date: 20100127
  Receipt Date: 20090317
  Transmission Date: 20100710
  Serious: No
  Sender: FDA-Public Use
  Company Number: A0765511A

PATIENT
  Age: 54 Year
  Sex: Female
  Weight: 56.8 kg

DRUGS (4)
  1. SUMATRIPTAN SUCCINATE [Suspect]
     Indication: MIGRAINE
     Dosage: 6MG UNKNOWN
     Route: 042
     Dates: start: 20090117
  2. GSK AUTOINJECTOR [Suspect]
     Indication: MIGRAINE
  3. WELLBUTRIN [Concomitant]
     Indication: DEPRESSION
     Route: 048
  4. CONCURRENT MEDICATIONS [Concomitant]

REACTIONS (3)
  - APPLICATION SITE PAIN [None]
  - DRUG INEFFECTIVE [None]
  - PRODUCT QUALITY ISSUE [None]
